FAERS Safety Report 8523209-4 (Version None)
Quarter: 2012Q3

REPORT INFORMATION
  Report Type: 
  Country: None (occurrence: None)
  Receive Date: 20120709
  Receipt Date: 20120613
  Transmission Date: 20120928
  Serious: Yes (Hospitalization)
  Sender: FDA-Public Use
  Company Number: JP-1185399

PATIENT
  Age: 59 Year
  Sex: Male

DRUGS (4)
  1. RHYTHMY [Concomitant]
  2. CEFAZOLIN SODIUM [Concomitant]
  3. TIMOLOL MALEATE [Suspect]
     Indication: OCULAR HYPERTENSION
     Dosage: (1 GTT BID OU OPHTHALMIC)
     Route: 047
     Dates: start: 20101210, end: 20110311
  4. BRINZOLAMIDE 1%/BRIMONIDINE TARTRATE 0.2% [Suspect]
     Indication: OCULAR HYPERTENSION
     Dosage: (1 GTT BID OU OPHTHALMIC)
     Route: 047
     Dates: start: 20101211, end: 20110311

REACTIONS (1)
  - PRINZMETAL ANGINA [None]
